FAERS Safety Report 14502669 (Version 1)
Quarter: 2018Q1

REPORT INFORMATION
  Report Type: Spontaneous
  Country: ES (occurrence: ES)
  Receive Date: 20180208
  Receipt Date: 20180208
  Transmission Date: 20180509
  Serious: Yes (Other)
  Sender: FDA-Public Use
  Company Number: ES-STRIDES ARCOLAB LIMITED-2017SP007873

PATIENT

DRUGS (1)
  1. IMIQUIMOD. [Suspect]
     Active Substance: IMIQUIMOD
     Indication: BASAL CELL CARCINOMA
     Dosage: ONCE A DAY FOR FIVE DAYS IN A WEEK
     Route: 061

REACTIONS (2)
  - Condition aggravated [Recovered/Resolved]
  - Off label use [Unknown]
